FAERS Safety Report 12696397 (Version 3)
Quarter: 2017Q1

REPORT INFORMATION
  Report Type: Report from Study
  Country: US (occurrence: US)
  Receive Date: 20160830
  Receipt Date: 20170217
  Transmission Date: 20170428
  Serious: Yes (Hospitalization, Other)
  Sender: FDA-Public Use
  Company Number: US-ASTRAZENECA-2016SE92280

PATIENT
  Age: 28425 Day
  Sex: Female

DRUGS (1)
  1. DALIRESP [Suspect]
     Active Substance: ROFLUMILAST
     Route: 048

REACTIONS (16)
  - Abdominal pain upper [Unknown]
  - Drug intolerance [Unknown]
  - Perforation bile duct [Unknown]
  - Diarrhoea [Unknown]
  - Lung infection [Unknown]
  - Body temperature abnormal [Unknown]
  - Feeling abnormal [Unknown]
  - Glucose tolerance impaired [Unknown]
  - Drug dose omission [Unknown]
  - Malaise [Unknown]
  - Neoplasm malignant [Unknown]
  - Vomiting [Unknown]
  - Chronic obstructive pulmonary disease [Unknown]
  - Infection [Unknown]
  - Urinary tract infection [Unknown]
  - Hypertension [Unknown]

NARRATIVE: CASE EVENT DATE: 20161231
